FAERS Safety Report 6677659-1 (Version None)
Quarter: 2010Q2

REPORT INFORMATION
  Report Type: 
  Country: None (occurrence: None)
  Receive Date: 20100412
  Receipt Date: 20100301
  Transmission Date: 20101027
  Serious: Yes (Hospitalization)
  Sender: FDA-Public Use
  Company Number: US-ALEXION-A201000187

PATIENT
  Sex: Male

DRUGS (7)
  1. SOLIRIS [Suspect]
     Indication: PAROXYSMAL NOCTURNAL HAEMOGLOBINURIA
     Dosage: 600 MG, QWK X 4
     Route: 042
     Dates: start: 20071010, end: 20070101
  2. SOLIRIS [Suspect]
     Dosage: 900 MG, Q2WKS
     Route: 042
     Dates: start: 20071107
  3. CALCITROL                          /00508501/ [Concomitant]
     Dosage: UNK
     Route: 048
  4. FOLIC ACID [Concomitant]
     Dosage: 1 MG, QD
     Route: 048
  5. TYLENOL (CAPLET) [Concomitant]
     Dosage: UNK
     Route: 048
  6. PRILOSEC [Concomitant]
     Dosage: UNK
     Route: 048
  7. POTASSIUM SODIUM PHOSPHATE [Concomitant]
     Dosage: UNK

REACTIONS (3)
  - HAEMOGLOBIN DECREASED [None]
  - HEADACHE [None]
  - PYREXIA [None]
